FAERS Safety Report 6317245-6 (Version None)
Quarter: 2009Q3

REPORT INFORMATION
  Report Type: 
  Country: None (occurrence: None)
  Receive Date: 20090819
  Receipt Date: 20090805
  Transmission Date: 20100115
  Serious: Yes (Death, Hospitalization)
  Sender: FDA-Public Use
  Company Number: 2009AL003508

PATIENT
  Sex: Female

DRUGS (1)
  1. DIGOXIN [Suspect]
     Dosage: 0.125MG, DAILY, PO
     Route: 048

REACTIONS (4)
  - ECONOMIC PROBLEM [None]
  - MULTIPLE INJURIES [None]
  - SURGERY [None]
  - UNEVALUABLE EVENT [None]
